FAERS Safety Report 7638930-X (Version None)
Quarter: 2011Q3

REPORT INFORMATION
  Report Type: 
  Country: None (occurrence: None)
  Receive Date: 20110721
  Receipt Date: 20110713
  Transmission Date: 20111222
  Serious: Yes (Hospitalization)
  Sender: FDA-Public Use
  Company Number: PYR-11-16

PATIENT
  Age: 62 Year

DRUGS (4)
  1. ISONIAZID [Concomitant]
  2. STREPTOMYCIN [Concomitant]
  3. PYRAZINAMIDE [Suspect]
     Indication: TUBERCULOSIS
  4. RIFAMPICIN [Concomitant]

REACTIONS (2)
  - DRUG HYPERSENSITIVITY [None]
  - DRUG ERUPTION [None]
